FAERS Safety Report 4818409-0 (Version None)
Quarter: 2005Q4

REPORT INFORMATION
  Report Type: 
  Country: None (occurrence: None)
  Receive Date: 20051031
  Receipt Date: 20051019
  Transmission Date: 20060501
  Serious: Yes (Death)
  Sender: FDA-Public Use
  Company Number: 2005AP000851

PATIENT
  Age: 10 Month
  Sex: Male

DRUGS (1)
  1. DILT-XR [Suspect]
     Indication: ACCIDENTAL EXPOSURE
     Dosage: 1X; PO
     Route: 048
     Dates: start: 20040101, end: 20040101

REACTIONS (9)
  - ACCIDENTAL DRUG INTAKE BY CHILD [None]
  - BRADYCARDIA [None]
  - CONVULSION [None]
  - CRYING [None]
  - HYPERGLYCAEMIA [None]
  - HYPOTENSION [None]
  - THERAPY NON-RESPONDER [None]
  - TREMOR [None]
  - VOMITING [None]
